FAERS Safety Report 12668571 (Version 2)
Quarter: 2017Q1

REPORT INFORMATION
  Report Type: Spontaneous
  Country: NL (occurrence: NL)
  Receive Date: 20160819
  Receipt Date: 20170216
  Transmission Date: 20170428
  Serious: Yes (Other)
  Sender: FDA-Public Use
  Company Number: NL-ASTRAZENECA-2016SE52319

PATIENT
  Sex: Male

DRUGS (1)
  1. ZOLADEX [Suspect]
     Active Substance: GOSERELIN ACETATE
     Indication: PROSTATE CANCER
     Route: 058
     Dates: start: 20130814

REACTIONS (5)
  - Metastases to bone [Unknown]
  - Muscular weakness [Unknown]
  - Arthralgia [Unknown]
  - Blood count abnormal [Unknown]
  - Hot flush [Unknown]
